FAERS Safety Report 5976546-1 (Version None)
Quarter: 2008Q4

REPORT INFORMATION
  Report Type: 
  Country: None (occurrence: None)
  Receive Date: 20081125
  Receipt Date: 20081110
  Transmission Date: 20090506
  Serious: Yes (Hospitalization)
  Sender: FDA-Public Use
  Company Number: 2008002784

PATIENT
  Age: 58 Year
  Sex: Female

DRUGS (12)
  1. ERLOTINIB (ERLOTINIB) (TABLET) (ERLOTINIB) [Suspect]
     Indication: NON-SMALL CELL LUNG CANCER
     Dosage: 150 MG, QD, ORAL
     Route: 048
     Dates: start: 20080926
  2. BEVACIZUMAB (INJECTION FOR INFUSION) [Suspect]
     Indication: NON-SMALL CELL LUNG CANCER
     Dosage: 1230 MG, Q3W, INTRAVENOUS
     Route: 042
     Dates: start: 20080926
  3. VERPAMIL (VERAPAMIL HYDROCHLORIDE) [Concomitant]
  4. PRACTOLOL (PRACTOLOL) [Concomitant]
  5. THEOPHYLLINE [Concomitant]
  6. DIOVAN [Concomitant]
  7. SPIRIVA [Concomitant]
  8. FORADIL [Concomitant]
  9. BERODUAL (DUOVENT) [Concomitant]
  10. ESTRADIOL [Concomitant]
  11. PANTOPRAZOLE SODIUM [Concomitant]
  12. ISOPTIN SR [Concomitant]

REACTIONS (1)
  - HYPERTENSIVE CRISIS [None]
